FAERS Safety Report 7813912-3 (Version None)
Quarter: 2011Q4

REPORT INFORMATION
  Report Type: 
  Country: None (occurrence: None)
  Receive Date: 20111014
  Receipt Date: 20111007
  Transmission Date: 20120403
  Serious: Yes (Other)
  Sender: FDA-Public Use
  Company Number: US-PFIZER INC-2011241456

PATIENT
  Sex: Male

DRUGS (1)
  1. SUTENT [Suspect]
     Indication: RENAL CANCER METASTATIC
     Dosage: 3 WEEKS ON AND 3 WEEKS OFF

REACTIONS (3)
  - METASTATIC RENAL CELL CARCINOMA [None]
  - OSTEONECROSIS [None]
  - DISEASE PROGRESSION [None]
